FAERS Safety Report 6409320-2 (Version None)
Quarter: 2009Q4

REPORT INFORMATION
  Report Type: 
  Country: None (occurrence: None)
  Receive Date: 20091019
  Receipt Date: 20091019
  Transmission Date: 20100525
  Serious: Yes (Other)
  Sender: FDA-Public Use
  Company Number: None

PATIENT
  Age: 62 Year
  Sex: Female

DRUGS (3)
  1. VENTOLIN HFA [Suspect]
     Indication: ASTHMA
     Dosage: USE IN EMERGENCY
     Dates: start: 20090515, end: 20091016
  2. VENTOLIN HFA [Suspect]
     Indication: CHRONIC OBSTRUCTIVE PULMONARY DISEASE
     Dosage: USE IN EMERGENCY
     Dates: start: 20090515, end: 20091016
  3. VENTOLIN HFA [Suspect]
     Indication: EMPHYSEMA
     Dosage: USE IN EMERGENCY
     Dates: start: 20090515, end: 20091016

REACTIONS (2)
  - DYSPNOEA [None]
  - WHEEZING [None]
